FAERS Safety Report 22653894 (Version 2)
Quarter: 2024Q1

REPORT INFORMATION
  Report Type: Spontaneous
  Country: US (occurrence: US)
  Receive Date: 20230629
  Receipt Date: 20240318
  Transmission Date: 20240409
  Serious: No
  Sender: FDA-Public Use
  Company Number: US-SA-SAC20230628000685

PATIENT
  Age: 17 Year
  Sex: Male

DRUGS (6)
  1. ELOCTATE [Suspect]
     Active Substance: EFMOROCTOCOG ALFA
     Indication: Factor VIII deficiency
     Dosage: 4500 U, PRN
     Route: 042
     Dates: start: 201903
  2. ELOCTATE [Suspect]
     Active Substance: EFMOROCTOCOG ALFA
     Indication: Factor VIII deficiency
     Dosage: 4500 U, PRN
     Route: 042
     Dates: start: 201903
  3. ELOCTATE [Suspect]
     Active Substance: EFMOROCTOCOG ALFA
     Indication: Haemorrhage
     Dosage: 4000 U (3600-4400), PRN FOR BREAKTHROUGH BLEEDS
     Route: 042
  4. ELOCTATE [Suspect]
     Active Substance: EFMOROCTOCOG ALFA
     Indication: Haemorrhage
     Dosage: 4000 U (3600-4400), PRN FOR BREAKTHROUGH BLEEDS
     Route: 042
  5. VITAMIN D NOS [Concomitant]
     Active Substance: VITAMIN D NOS
     Dosage: UNK
  6. HEMLIBRA [Concomitant]
     Active Substance: EMICIZUMAB-KXWH
     Dosage: INJECT A TOTAL OF 255 MG (1.7ML) SUBCUTANEOUSLY EVERY 2 WEEKS. (INJECT 1ML FROM 1-150MG VIAL AND 0.7
     Route: 058

REACTIONS (2)
  - Blood urine present [Not Recovered/Not Resolved]
  - Blood urine present [Unknown]

NARRATIVE: CASE EVENT DATE: 20230617
